APPROVED DRUG PRODUCT: NORETHINDRONE AND ETHINYL ESTRADIOL AND FERROUS FUMARATE
Active Ingredient: ETHINYL ESTRADIOL; NORETHINDRONE
Strength: 0.025MG;0.8MG
Dosage Form/Route: TABLET, CHEWABLE;ORAL
Application: N022573 | Product #001
Applicant: TEVA BRANDED PHARMACEUTICAL PRODUCTS R AND D INC
Approved: Dec 22, 2010 | RLD: Yes | RS: No | Type: DISCN